FAERS Safety Report 19581414 (Version 2)
Quarter: 2021Q3

REPORT INFORMATION
  Report Type: Spontaneous
  Country: US (occurrence: US)
  Receive Date: 20210720
  Receipt Date: 20210830
  Transmission Date: 20211014
  Serious: No
  Sender: FDA-Public Use
  Company Number: US-BAUSCH-BL-2021-022027

PATIENT
  Age: 78 Year
  Sex: Female
  Weight: 47.22 kg

DRUGS (1)
  1. CROMOLYN SODIUM NASAL SOLUTION USP [Suspect]
     Active Substance: CROMOLYN SODIUM
     Indication: HYPERSENSITIVITY
     Dosage: APPROXIMATELY 120 DAYS AGO, 1 SPRAY IN EACH NOSTRIL IN MORNING AND EVENING
     Route: 045
     Dates: start: 2021, end: 2021

REACTIONS (4)
  - Inappropriate schedule of product administration [Unknown]
  - Dizziness [Unknown]
  - Nasal congestion [Unknown]
  - Increased viscosity of upper respiratory secretion [Unknown]

NARRATIVE: CASE EVENT DATE: 2021
